FAERS Safety Report 5563978-9 (Version None)
Quarter: 2007Q4

REPORT INFORMATION
  Report Type: 
  Country: None (occurrence: None)
  Receive Date: 20071217
  Receipt Date: 20071205
  Transmission Date: 20080405
  Serious: Yes (Hospitalization, Disabling, Other)
  Sender: FDA-Public Use
  Company Number: US-PFIZER INC-2007103208

PATIENT
  Sex: Female

DRUGS (9)
  1. LIPITOR [Suspect]
     Indication: HYPERLIPIDAEMIA
     Route: 048
  2. WELCHOL [Suspect]
     Dates: start: 20070101, end: 20070101
  3. MIDRIN [Concomitant]
  4. FISH OIL [Concomitant]
  5. LEVOTHYROXINE SODIUM [Concomitant]
     Indication: HYPOTHYROIDISM
  6. POTASSIUM CHLORIDE [Concomitant]
     Indication: ELECTROLYTE SUBSTITUTION THERAPY
  7. LASIX [Concomitant]
  8. LEXAPRO [Concomitant]
  9. MECLIZINE [Concomitant]

REACTIONS (6)
  - ABDOMINAL PAIN [None]
  - CONSTIPATION [None]
  - DIVERTICULUM [None]
  - IRRITABLE BOWEL SYNDROME [None]
  - MYOPATHY [None]
  - NEUROPATHY [None]
